FAERS Safety Report 17189364 (Version 2)
Quarter: 2020Q1

REPORT INFORMATION
  Report Type: Spontaneous
  Country: US (occurrence: US)
  Receive Date: 20191223
  Receipt Date: 20200310
  Transmission Date: 20200409
  Serious: Yes (Hospitalization, Other)
  Sender: FDA-Public Use
  Company Number: NVSC2019US066036

PATIENT
  Age: 63 Year
  Sex: Male

DRUGS (1)
  1. LUTATHERA [Suspect]
     Active Substance: LUTETIUM OXODOTREOTIDE LU-177
     Indication: METASTATIC CARCINOID TUMOUR
     Dosage: UNK
     Route: 042
     Dates: start: 20190512, end: 20190512

REACTIONS (3)
  - Duodenal obstruction [Recovered/Resolved]
  - Inflammation [Unknown]
  - Haematemesis [Unknown]

NARRATIVE: CASE EVENT DATE: 20190612
